FAERS Safety Report 7438680-9 (Version None)
Quarter: 2011Q2

REPORT INFORMATION
  Report Type: 
  Country: None (occurrence: None)
  Receive Date: 20110426
  Receipt Date: 20110413
  Transmission Date: 20111010
  Serious: Yes (Hospitalization)
  Sender: FDA-Public Use
  Company Number: DE-GENENTECH-315843

PATIENT
  Sex: Male
  Weight: 55 kg

DRUGS (8)
  1. LEUKERAN [Suspect]
     Indication: B-CELL LYMPHOMA
     Dosage: 16 MG, UNK
     Route: 048
     Dates: start: 20110302
  2. PREDNISOLONE [Suspect]
     Indication: B-CELL LYMPHOMA
     Dosage: 50 MG, QAM
     Route: 042
     Dates: start: 20110302
  3. RAMIPRIL [Concomitant]
     Indication: PRODUCT USED FOR UNKNOWN INDICATION
     Dosage: UNK
  4. MITOXANTRONE [Suspect]
     Indication: B-CELL LYMPHOMA
     Dosage: 14 MG, UNK
     Route: 042
     Dates: start: 20110302
  5. XIPAMID [Concomitant]
     Indication: PRODUCT USED FOR UNKNOWN INDICATION
     Dosage: UNK
  6. RITUXIMAB [Suspect]
     Indication: B-CELL LYMPHOMA
     Dosage: 600 MG, UNK
     Route: 042
     Dates: start: 20110228
  7. SPIRONOLACTONE [Concomitant]
     Indication: PRODUCT USED FOR UNKNOWN INDICATION
     Dosage: UNK
     Dates: start: 20110218
  8. BISOPROLOL [Concomitant]
     Indication: PRODUCT USED FOR UNKNOWN INDICATION
     Dosage: UNK

REACTIONS (1)
  - GENERAL PHYSICAL HEALTH DETERIORATION [None]
